FAERS Safety Report 18060225 (Version 2)
Quarter: 2020Q3

REPORT INFORMATION
  Report Type: Spontaneous
  Country: IT (occurrence: IT)
  Receive Date: 20200723
  Receipt Date: 20200908
  Transmission Date: 20201103
  Serious: Yes (Hospitalization)
  Sender: FDA-Public Use
  Company Number: NVSC2020IT203913

PATIENT
  Age: 78 Year
  Sex: Female

DRUGS (6)
  1. ZOLPIDEM [Suspect]
     Active Substance: ZOLPIDEM TARTRATE
     Indication: DRUG ABUSE
     Dosage: UNK
     Route: 048
  2. FRISIUM [Suspect]
     Active Substance: CLOBAZAM
     Indication: DRUG ABUSE
     Dosage: 40 DF, UNKNOWN(40 DF TOTAL)
     Route: 048
     Dates: start: 20200527, end: 20200527
  3. LORMETAZEPAM [Suspect]
     Active Substance: LORMETAZEPAM
     Indication: DRUG ABUSE
     Dosage: UNK
     Route: 048
  4. MINIAS [Suspect]
     Active Substance: LORMETAZEPAM
     Indication: DRUG ABUSE
     Dosage: 10 ML, UNKNOWN
     Route: 048
     Dates: start: 20200527, end: 20200527
  5. CLOBAZAM. [Suspect]
     Active Substance: CLOBAZAM
     Indication: DRUG ABUSE
     Dosage: UNK UNK, UNKNOWN
     Route: 065
  6. STILNOX [Suspect]
     Active Substance: ZOLPIDEM TARTRATE
     Indication: DRUG ABUSE
     Dosage: 30 DF, UNKNOWN(30 DF TOTAL)
     Route: 048
     Dates: start: 20200527, end: 20200527

REACTIONS (1)
  - Sopor [Recovering/Resolving]

NARRATIVE: CASE EVENT DATE: 20200528
